FAERS Safety Report 6710539-1 (Version None)
Quarter: 2010Q2

REPORT INFORMATION
  Report Type: 
  Country: None (occurrence: None)
  Receive Date: 20100504
  Receipt Date: 20100426
  Transmission Date: 20101027
  Serious: Yes (Death)
  Sender: FDA-Public Use
  Company Number: US-GILEAD-2010-0028619

PATIENT
  Sex: Male

DRUGS (19)
  1. LETAIRIS [Suspect]
     Indication: PULMONARY ARTERIAL HYPERTENSION
  2. PLAVIX [Concomitant]
  3. LASIX [Concomitant]
  4. METOPROLOL [Concomitant]
  5. ISOSORBIDE MONONITRATE [Concomitant]
  6. ALBUTEROL [Concomitant]
  7. PROAIR HFA [Concomitant]
  8. MUCINEX [Concomitant]
  9. FLUTICASONE PROPIONATE [Concomitant]
  10. IPRATROPIUM [Concomitant]
  11. HUMULIN N [Concomitant]
  12. GLYSET [Concomitant]
  13. LORATADINE [Concomitant]
  14. SIMVASTATIN [Concomitant]
  15. NIACIN [Concomitant]
  16. LOVAZA [Concomitant]
  17. MULTI 50+ [Concomitant]
  18. VITAMIN D PAK [Concomitant]
  19. VITAMIN C AND E [Concomitant]

REACTIONS (1)
  - DEATH [None]
